FAERS Safety Report 5325162-3 (Version None)
Quarter: 2007Q2

REPORT INFORMATION
  Report Type: 
  Country: None (occurrence: None)
  Receive Date: 20070515
  Receipt Date: 20070514
  Transmission Date: 20071010
  Serious: Yes (Hospitalization, Other)
  Sender: FDA-Public Use
  Company Number: A0643056A

PATIENT
  Sex: Female

DRUGS (7)
  1. ADVAIR DISKUS 100/50 [Suspect]
     Indication: ASTHMA
     Route: 055
     Dates: end: 20050101
  2. INSULIN [Concomitant]
  3. LISINOPRIL [Concomitant]
  4. FUROSEMIDE [Concomitant]
  5. POTASSIUM ACETATE [Concomitant]
  6. ALLERGY MEDICATION [Concomitant]
  7. PROVENTIL-HFA [Concomitant]

REACTIONS (9)
  - CEREBROVASCULAR ACCIDENT [None]
  - DISCOMFORT [None]
  - DRY EYE [None]
  - EYE MOVEMENT DISORDER [None]
  - EYE PAIN [None]
  - HEADACHE [None]
  - OPTIC NERVE DISORDER [None]
  - PHOTOSENSITIVITY REACTION [None]
  - VISUAL ACUITY REDUCED [None]
